FAERS Safety Report 22881296 (Version 3)
Quarter: 2024Q2

REPORT INFORMATION
  Report Type: Spontaneous
  Country: US (occurrence: US)
  Receive Date: 20230830
  Receipt Date: 20240403
  Transmission Date: 20240715
  Serious: No
  Sender: FDA-Public Use
  Company Number: US-SA-SAC20230823001038

PATIENT
  Age: 20 Year
  Sex: Female

DRUGS (1)
  1. DUPIXENT [Suspect]
     Active Substance: DUPILUMAB
     Indication: Dermatitis atopic
     Dosage: 300 MG, QOW
     Route: 058

REACTIONS (7)
  - Influenza [Recovered/Resolved]
  - Heart rate increased [Recovered/Resolved]
  - Oral herpes [Recovering/Resolving]
  - Eczema [Unknown]
  - Eczema asteatotic [Unknown]
  - Dermatitis atopic [Unknown]
  - Drug ineffective [Unknown]
